FAERS Safety Report 22636768 (Version 1)
Quarter: 2023Q2

REPORT INFORMATION
  Report Type: Spontaneous
  Country: US (occurrence: None)
  Receive Date: 20230621
  Receipt Date: 20230621
  Transmission Date: 20230721
  Serious: No
  Sender: FDA-Public Use
  Company Number: None

PATIENT
  Sex: Female

DRUGS (16)
  1. PACLITAXEL [Suspect]
     Active Substance: PACLITAXEL
     Indication: Cholangiocarcinoma
     Dosage: FREQUENCY : WEEKLY;?OTHER ROUTE : IV D1,8,15/28D CYCLE;?
     Route: 042
  2. FULPHILA [Suspect]
     Active Substance: PEGFILGRASTIM-JMDB
     Indication: Cholangiocarcinoma
     Dosage: OTHER FREQUENCY : EVERY 24 HOURS;?OTHER ROUTE : IV SC EVERY 21 DAYS;?
     Route: 058
  3. AMLODIPINE [Concomitant]
  4. COLACE [Concomitant]
     Active Substance: DOCUSATE SODIUM
  5. SENNA-EXTRA [Concomitant]
  6. FOLIC ACID [Concomitant]
     Active Substance: FOLIC ACID
  7. GABAPENTIN [Concomitant]
  8. LIDOCAINE-PRILOCAINE EXTERNAL CREAM [Concomitant]
  9. MIRALAX [Concomitant]
     Active Substance: POLYETHYLENE GLYCOL 3350
  10. MIRALAX [Concomitant]
     Active Substance: POLYETHYLENE GLYCOL 3350
  11. MORPHINE [Concomitant]
     Active Substance: MORPHINE
  12. NALOXONE [Concomitant]
     Active Substance: NALOXONE
  13. NORCO [Concomitant]
     Active Substance: ACETAMINOPHEN\HYDROCODONE BITARTRATE
  14. OMEPRAZOLE [Concomitant]
  15. ZOFRAN [Concomitant]
  16. OXYCODONE [Concomitant]
     Active Substance: OXYCODONE

REACTIONS (2)
  - Cholangiocarcinoma [None]
  - Malignant neoplasm progression [None]
